FAERS Safety Report 25833223 (Version 1)
Quarter: 2025Q3

REPORT INFORMATION
  Report Type: Spontaneous
  Country: US (occurrence: None)
  Receive Date: 20250922
  Receipt Date: 20250922
  Transmission Date: 20251021
  Serious: No
  Sender: FDA-CTU
  Company Number: None

PATIENT
  Age: 87 Year
  Sex: Female
  Weight: 72 kg

DRUGS (4)
  1. EVENITY [Suspect]
     Active Substance: ROMOSOZUMAB-AQQG
     Indication: Osteoporosis
     Dosage: OTHER QUANTITY : 2 INJECTION(S);?FREQUENCY : DAILY;?
     Route: 058
     Dates: start: 20250916
  2. atorvastatin 20mg daily [Concomitant]
  3. PreserVision daily [Concomitant]
  4. Kirkland mature multi vitamin daily [Concomitant]

REACTIONS (2)
  - Muscle spasms [None]
  - Inadequate analgesia [None]

NARRATIVE: CASE EVENT DATE: 20250916
